FAERS Safety Report 5947732-1 (Version None)
Quarter: 2008Q4

REPORT INFORMATION
  Report Type: 
  Country: None (occurrence: None)
  Receive Date: 20081107
  Receipt Date: 20081029
  Transmission Date: 20090506
  Serious: No
  Sender: FDA-Public Use
  Company Number: 2008-186013-NL

PATIENT
  Age: 63 Year
  Sex: Female

DRUGS (11)
  1. DEXAMETHASONE 0.5MG TAB [Suspect]
     Dosage: 20 MG,
  2. BORTEZOMIB [Suspect]
     Indication: MYELOMA RECURRENCE
     Dosage: 1.3 MG/M2/DF, INTRAVENOUS (NOS
     Route: 042
     Dates: start: 20080512, end: 20080804
  3. BORTEZOMIB [Suspect]
  4. BORTEZOMIB [Suspect]
  5. BORTEZOMIB [Suspect]
  6. BORTEZOMIB [Suspect]
  7. ONDANSETRON [Suspect]
     Dosage: 8 MG, BID; ORAL
     Route: 048
  8. ACYCLOVIR [Concomitant]
  9. FOLIC ACID [Concomitant]
  10. METOCLOPRAMIDE [Concomitant]
  11. MORPHINE SULFATE [Concomitant]

REACTIONS (1)
  - LIVER FUNCTION TEST ABNORMAL [None]
